FAERS Safety Report 15465844 (Version 1)
Quarter: 2018Q4

REPORT INFORMATION
  Report Type: Spontaneous
  Country: US (occurrence: US)
  Receive Date: 20181004
  Receipt Date: 20181004
  Transmission Date: 20190204
  Serious: No
  Sender: FDA-Public Use
  Company Number: US-FOUNDATIONCONSUMERHC-2018-US-012090

PATIENT
  Age: 21 Year
  Sex: Female
  Weight: 77.11 kg

DRUGS (3)
  1. PLAN B ONE-STEP [Suspect]
     Active Substance: LEVONORGESTREL
     Indication: POST COITAL CONTRACEPTION
     Dosage: 1.5MG
     Route: 048
     Dates: start: 20180523, end: 20180523
  2. HAIR SKIN NAIL VITAMIN UNSPECIFIED [Concomitant]
     Route: 048
  3. COLLAGEN POWDER UNSPECIFIED [Concomitant]
     Route: 048

REACTIONS (2)
  - Polymenorrhoea [Recovered/Resolved]
  - Vaginal haemorrhage [Recovering/Resolving]

NARRATIVE: CASE EVENT DATE: 20180604
